FAERS Safety Report 25083266 (Version 2)
Quarter: 2025Q4

REPORT INFORMATION
  Report Type: Report from Study
  Country: GB (occurrence: GB)
  Receive Date: 20250317
  Receipt Date: 20251103
  Transmission Date: 20260117
  Serious: Yes (Other)
  Sender: CELLTRION
  Company Number: GB-CELLTRION INC.-2025GB004460

PATIENT

DRUGS (1)
  1. INFLIXIMAB-DYYB [Suspect]
     Active Substance: INFLIXIMAB-DYYB
     Indication: Crohn^s disease
     Dosage: 120 MG, EVERY 2 WEEKS
     Route: 058
     Dates: start: 20241115

REACTIONS (5)
  - Nephrolithiasis [Unknown]
  - Intestinal operation [Unknown]
  - Renal cyst [Unknown]
  - Urinary tract infection [Not Recovered/Not Resolved]
  - Intentional dose omission [Unknown]
